FAERS Safety Report 6593852-0 (Version None)
Quarter: 2010Q1

REPORT INFORMATION
  Report Type: 
  Country: None (occurrence: None)
  Receive Date: 20100222
  Receipt Date: 20100210
  Transmission Date: 20100710
  Serious: Yes (Death)
  Sender: FDA-Public Use
  Company Number: JP-PFIZER INC-2010019397

PATIENT

DRUGS (1)
  1. ZYVOX [Suspect]
     Dosage: UNK
     Dates: start: 20100124, end: 20100203

REACTIONS (2)
  - PLATELET COUNT DECREASED [None]
  - PULMONARY HAEMORRHAGE [None]
